FAERS Safety Report 24696097 (Version 1)
Quarter: 2024Q4

REPORT INFORMATION
  Report Type: Spontaneous
  Country: JP (occurrence: JP)
  Receive Date: 20241204
  Receipt Date: 20241204
  Transmission Date: 20250115
  Serious: Yes (Other)
  Sender: ACCORD
  Company Number: JP-MLMSERVICE-20241118-PI260562-00255-1

PATIENT
  Age: 55 Year
  Sex: Female

DRUGS (4)
  1. CISPLATIN [Suspect]
     Active Substance: CISPLATIN
     Indication: Cervix carcinoma
     Dosage: FIRST COURSE, CUMULATIVE DOSE: 1 CYCLICAL
  2. PACLITAXEL [Suspect]
     Active Substance: PACLITAXEL
     Indication: Cervix carcinoma
     Dosage: FIRST COURSE,?CUMULATIVE DOSE: 1 CYCLICAL
  3. BEVACIZUMAB [Suspect]
     Active Substance: BEVACIZUMAB
     Indication: Cervix carcinoma
     Dosage: FIRST COURSE, CUMULATIVE DOSE: 1 CYCLICAL
  4. PEMBROLIZUMAB [Suspect]
     Active Substance: PEMBROLIZUMAB
     Indication: Cervix carcinoma
     Dosage: FIRST COURSE, CUMULATIVE DOSE: 1 CYCLICAL

REACTIONS (1)
  - Erythema multiforme [Recovering/Resolving]
